FAERS Safety Report 12529487 (Version 1)
Quarter: 2016Q3

REPORT INFORMATION
  Report Type: Spontaneous
  Country: FR (occurrence: FR)
  Receive Date: 20160706
  Receipt Date: 20160706
  Transmission Date: 20161109
  Serious: Yes (Life-Threatening)
  Sender: FDA-Public Use
  Company Number: FR-ASTRAZENECA-2016SE72780

PATIENT
  Age: 22414 Day
  Sex: Female

DRUGS (2)
  1. SERESTA [Suspect]
     Active Substance: OXAZEPAM
     Dosage: 350.0MG ONCE/SINGLE ADMINISTRATION
     Route: 048
     Dates: start: 201601, end: 201601
  2. XEROQUEL [Suspect]
     Active Substance: QUETIAPINE FUMARATE
     Dosage: 2.0DF ONCE/SINGLE ADMINISTRATION
     Route: 048
     Dates: start: 201601, end: 201601

REACTIONS (3)
  - Toxicity to various agents [Unknown]
  - Coma [Unknown]
  - Vomiting [Unknown]

NARRATIVE: CASE EVENT DATE: 20160108
